FAERS Safety Report 12515306 (Version 1)
Quarter: 2016Q2

REPORT INFORMATION
  Report Type: Spontaneous
  Country: FR (occurrence: FR)
  Receive Date: 20160630
  Receipt Date: 20160630
  Transmission Date: 20160815
  Serious: Yes (Other)
  Sender: FDA-Public Use
  Company Number: FR-ASTRAZENECA-2016SE71093

PATIENT
  Age: 55 Year
  Sex: Female

DRUGS (4)
  1. DEPAKOTE [Concomitant]
     Active Substance: DIVALPROEX SODIUM
     Indication: AFFECTIVE DISORDER
     Dates: start: 201505, end: 20160531
  2. BACLOFENE [Concomitant]
     Active Substance: BACLOFEN
     Indication: ALCOHOL POISONING
     Dates: start: 20160503
  3. XEROQUEL [Suspect]
     Active Substance: QUETIAPINE FUMARATE
     Indication: AFFECTIVE DISORDER
     Route: 048
     Dates: start: 2015, end: 20160503
  4. SERESTA [Concomitant]
     Active Substance: OXAZEPAM

REACTIONS (1)
  - Hidradenitis [Recovered/Resolved]

NARRATIVE: CASE EVENT DATE: 2015
